FAERS Safety Report 5714886-1 (Version None)
Quarter: 2008Q2

REPORT INFORMATION
  Report Type: 
  Country: None (occurrence: None)
  Receive Date: 20080423
  Receipt Date: 20070918
  Transmission Date: 20081010
  Serious: Yes (Other)
  Sender: FDA-Public Use
  Company Number: US-BAYER-US-2007-035166

PATIENT
  Age: 27 Year
  Sex: Female
  Weight: 79 kg

DRUGS (4)
  1. LEUKINE [Suspect]
     Indication: BREAST CANCER
     Route: 058
     Dates: start: 20070801, end: 20070801
  2. TAXOL [Concomitant]
     Route: 042
     Dates: start: 20070731
  3. EMEND [Concomitant]
     Dates: start: 20070731, end: 20070802
  4. DECADRON /NET/ [Concomitant]
     Dosage: UNIT DOSE: 4 MG
     Dates: start: 20070801, end: 20070803

REACTIONS (7)
  - ABDOMINAL PAIN [None]
  - DIZZINESS [None]
  - DYSPNOEA [None]
  - HYPERHIDROSIS [None]
  - HYPOTENSION [None]
  - HYPOXIA [None]
  - NAUSEA [None]
